FAERS Safety Report 8563607-6 (Version None)
Quarter: 2012Q3

REPORT INFORMATION
  Report Type: 
  Country: None (occurrence: None)
  Receive Date: 20120803
  Receipt Date: 20120725
  Transmission Date: 20120928
  Serious: Yes (Other)
  Sender: FDA-Public Use
  Company Number: US-BIOGENIDEC-2012BI022906

PATIENT
  Age: 35 Year
  Sex: Male

DRUGS (1)
  1. AVONEX [Suspect]
     Indication: MULTIPLE SCLEROSIS
     Route: 030
     Dates: start: 20001030, end: 20120628

REACTIONS (5)
  - DRUG INEFFECTIVE [None]
  - MULTIPLE SCLEROSIS [None]
  - GASTROINTESTINAL DISORDER [None]
  - MALIGNANT MELANOMA [None]
  - BLADDER DISORDER [None]
